FAERS Safety Report 6294491-1 (Version None)
Quarter: 2009Q3

REPORT INFORMATION
  Report Type: 
  Country: None (occurrence: None)
  Receive Date: 20090803
  Receipt Date: 20090724
  Transmission Date: 20100115
  Serious: Yes (Hospitalization)
  Sender: FDA-Public Use
  Company Number: US-ASTRAZENECA-2009SE06329

PATIENT
  Age: 66 Year
  Sex: Female
  Weight: 93.9 kg

DRUGS (6)
  1. TOPROL-XL [Suspect]
     Dosage: TWO PILLS, ONE IN THE MORNING AND ONE IN THE EVENING
     Route: 048
  2. DILTIAZEM HCL [Concomitant]
  3. CELEBREX [Concomitant]
  4. CITALOPRAM HYDROBROMIDE [Concomitant]
  5. LEVOTHYROXINE SODIUM [Concomitant]
  6. ASPIRIN [Concomitant]

REACTIONS (7)
  - ACCIDENTAL OVERDOSE [None]
  - ASTHENIA [None]
  - DIZZINESS [None]
  - FATIGUE [None]
  - HYPOTENSION [None]
  - NAUSEA [None]
  - VISION BLURRED [None]
